FAERS Safety Report 23727925 (Version 3)
Quarter: 2025Q3

REPORT INFORMATION
  Report Type: Spontaneous
  Country: JP (occurrence: JP)
  Receive Date: 20240410
  Receipt Date: 20250810
  Transmission Date: 20251020
  Serious: Yes (Hospitalization, Other)
  Sender: ALEXION PHARMACEUTICALS
  Company Number: None

PATIENT
  Age: 69 Year
  Sex: Male
  Weight: 42 kg

DRUGS (4)
  1. TAGRISSO [Suspect]
     Active Substance: OSIMERTINIB
     Indication: Non-small cell lung cancer
     Dosage: 80 MILLIGRAM, QD
     Dates: start: 20230208, end: 20240214
  2. SYMPROIC [Concomitant]
     Active Substance: NALDEMEDINE TOSYLATE
  3. CALCIUM CARBONATE\CHOLECALCIFEROL\MAGNESIUM CARBONATE [Concomitant]
     Active Substance: CALCIUM CARBONATE\CHOLECALCIFEROL\MAGNESIUM CARBONATE
  4. LINZESS [Concomitant]
     Active Substance: LINACLOTIDE

REACTIONS (5)
  - Cardiac failure acute [Recovered/Resolved]
  - Subcutaneous emphysema [Unknown]
  - Pneumomediastinum [Unknown]
  - COVID-19 pneumonia [Unknown]
  - Metastases to bone [Unknown]

NARRATIVE: CASE EVENT DATE: 20240110
